FAERS Safety Report 9512333 (Version 2)
Quarter: 2013Q3

REPORT INFORMATION
  Report Type: Report from Study
  Country: US (occurrence: US)
  Receive Date: 20130910
  Receipt Date: 20130913
  Transmission Date: 20140515
  Serious: Yes (Death, Hospitalization)
  Sender: FDA-Public Use
  Company Number: US-PFIZER INC-2013257325

PATIENT
  Age: 82 Year
  Sex: Female
  Weight: 65.7 kg

DRUGS (4)
  1. BLINDED CELECOXIB [Suspect]
     Indication: NON-SMALL CELL LUNG CANCER
     Dosage: 400 MG, 2X/DAY
     Route: 048
     Dates: start: 20120417
  2. BLINDED PLACEBO [Suspect]
     Indication: NON-SMALL CELL LUNG CANCER
     Dosage: 400 MG, 2X/DAY
     Route: 048
     Dates: start: 20120417
  3. CARBOPLATIN [Suspect]
     Indication: NON-SMALL CELL LUNG CANCER
     Dosage: AUC 6.0 DAY 1
     Route: 042
     Dates: start: 20120417, end: 20120510
  4. ALIMTA [Suspect]
     Indication: NON-SMALL CELL LUNG CANCER
     Dosage: 500 MG/M2 DAY 1
     Route: 042
     Dates: start: 20120417, end: 20120510

REACTIONS (1)
  - Pleural effusion [Fatal]
